FAERS Safety Report 10011549 (Version 1)
Quarter: 2014Q1

REPORT INFORMATION
  Report Type: Report from Study
  Country: JP (occurrence: JP)
  Receive Date: 20140314
  Receipt Date: 20140314
  Transmission Date: 20141002
  Serious: Yes (Death, Life-Threatening)
  Sender: FDA-Public Use
  Company Number: JP-SA-2013SA129984

PATIENT
  Age: 2 Year
  Sex: Female

DRUGS (25)
  1. EVOLTRA [Suspect]
     Indication: ACUTE LYMPHOCYTIC LEUKAEMIA RECURRENT
     Dosage: DOSE:10MG/BODY
     Route: 042
     Dates: start: 20130716, end: 20130720
  2. EVOLTRA [Suspect]
     Indication: ACUTE LYMPHOCYTIC LEUKAEMIA RECURRENT
     Dosage: DOSE:10MG/BODY
     Route: 042
     Dates: start: 20130802, end: 20130806
  3. EVOLTRA [Suspect]
     Indication: ACUTE LYMPHOCYTIC LEUKAEMIA RECURRENT
     Dosage: DOSE:10MG/BODY
     Route: 042
     Dates: start: 20130819, end: 20130823
  4. EVOLTRA [Suspect]
     Indication: ACUTE LYMPHOCYTIC LEUKAEMIA RECURRENT
     Dosage: DOSE:15MG/BODY
     Route: 042
     Dates: start: 20130903, end: 20130907
  5. EVOLTRA [Suspect]
     Indication: ACUTE LYMPHOCYTIC LEUKAEMIA RECURRENT
     Dosage: DOSE:15MG/BODY
     Route: 042
     Dates: start: 20130917, end: 20130921
  6. EVOLTRA [Suspect]
     Indication: ACUTE LYMPHOCYTIC LEUKAEMIA RECURRENT
     Dosage: DOSE:15MG/BODY
     Route: 042
     Dates: start: 20131003, end: 20131007
  7. TARGOCID [Suspect]
     Indication: PRODUCT USED FOR UNKNOWN INDICATION
     Route: 042
     Dates: start: 20130917, end: 20130923
  8. TARGOCID [Suspect]
     Indication: PRODUCT USED FOR UNKNOWN INDICATION
     Dosage: EVERY ALTERNATE DAY
     Route: 042
     Dates: start: 20130924, end: 20131008
  9. MEROPENEM [Suspect]
     Indication: PRODUCT USED FOR UNKNOWN INDICATION
     Route: 065
  10. ONCOVIN [Concomitant]
     Indication: ACUTE LYMPHOCYTIC LEUKAEMIA RECURRENT
     Dosage: DOSE: 0.4 MG/BODY
     Route: 042
     Dates: start: 20130926, end: 20131003
  11. DECADRON [Concomitant]
     Indication: ACUTE LYMPHOCYTIC LEUKAEMIA RECURRENT
     Dosage: DOSE: 1.65 MG/BODY
     Route: 042
     Dates: start: 20130917, end: 20130921
  12. DECADRON [Concomitant]
     Indication: ACUTE LYMPHOCYTIC LEUKAEMIA RECURRENT
     Dosage: DOSE: 1.65 MG/BODY
     Route: 042
     Dates: start: 20131003, end: 20131007
  13. SOLU-CORTEF [Concomitant]
     Indication: ACUTE LYMPHOCYTIC LEUKAEMIA RECURRENT
     Dosage: 40 MG/BODY DOSE
     Route: 042
     Dates: start: 20130917, end: 20130921
  14. SOLU-CORTEF [Concomitant]
     Indication: ACUTE LYMPHOCYTIC LEUKAEMIA RECURRENT
     Dosage: DOSE: 40 MG/BODY
     Route: 042
     Dates: start: 20131003, end: 20131007
  15. FUROSEMIDE [Concomitant]
     Dates: start: 20130903
  16. ANTIHYPERTENSIVES [Concomitant]
     Dosage: ANTIHYPERTENSIVE DRUG
     Route: 048
     Dates: start: 20130903
  17. OXYGEN [Concomitant]
  18. VINCRISTINE [Concomitant]
     Dates: start: 20130925
  19. VINCRISTINE [Concomitant]
     Dates: start: 20131003
  20. DEXAMETHASONE [Concomitant]
     Dates: start: 20130925
  21. DEXAMETHASONE [Concomitant]
     Dates: start: 20131003
  22. NEO-MINOPHAGEN C [Concomitant]
     Dates: start: 20131006
  23. ALBUMIN [Concomitant]
  24. LIDOCAINE [Concomitant]
  25. ATROPINE [Concomitant]

REACTIONS (2)
  - Renal failure acute [Fatal]
  - Drug-induced liver injury [Not Recovered/Not Resolved]
